FAERS Safety Report 6731138-1 (Version None)
Quarter: 2010Q2

REPORT INFORMATION
  Report Type: 
  Country: None (occurrence: None)
  Receive Date: 20100518
  Receipt Date: 20100506
  Transmission Date: 20101027
  Serious: Yes (Death, Other)
  Sender: FDA-Public Use
  Company Number: US-ROCHE-689275

PATIENT
  Sex: Female
  Weight: 101.5 kg

DRUGS (10)
  1. CAPECITABINE [Suspect]
     Indication: COLORECTAL CANCER
     Dosage: FREQUENCY: TAKEN IN MORNING AND EVENING
     Route: 048
     Dates: start: 20090715
  2. BEVACIZUMAB [Suspect]
     Indication: COLORECTAL CANCER
     Dosage: FORM: INFUSION
     Route: 065
     Dates: start: 20081201
  3. BEVACIZUMAB [Suspect]
     Route: 065
     Dates: start: 20090917
  4. FOLFOX REGIMEN [Suspect]
     Indication: COLORECTAL CANCER
     Route: 065
     Dates: start: 20081201
  5. IRINOTECAN [Concomitant]
     Indication: COLORECTAL CANCER
     Dates: start: 20090209
  6. DIFLUCAN [Concomitant]
     Route: 048
     Dates: start: 20091001, end: 20091003
  7. HYDROCODONE [Concomitant]
     Indication: PAIN
     Dosage: DOSE: 10/ 650
     Route: 048
  8. NYSTATIN [Concomitant]
     Dosage: FREQUENCY: AS NECESSARY
     Route: 061
     Dates: start: 20090311
  9. ZOFRAN [Concomitant]
     Indication: NAUSEA
     Route: 048
     Dates: start: 20081201
  10. COMPAZINE [Concomitant]
     Indication: NAUSEA
     Route: 048

REACTIONS (2)
  - CELLULITIS STAPHYLOCOCCAL [None]
  - MALIGNANT NEOPLASM PROGRESSION [None]
